FAERS Safety Report 18543395 (Version 1)
Quarter: 2020Q4

REPORT INFORMATION
  Report Type: Spontaneous
  Country: IT (occurrence: IT)
  Receive Date: 20201124
  Receipt Date: 20201124
  Transmission Date: 20210114
  Serious: Yes (Other)
  Sender: FDA-Public Use
  Company Number: IT-B.I. PHARMACEUTICALS,INC./RIDGEFIELD-2020-BI-063584

PATIENT
  Age: 51 Year
  Sex: Male

DRUGS (4)
  1. HYDROCHLOROTHIAZIDE;OLMESARTAN [Concomitant]
     Indication: DRUG THERAPY
     Dosage: 1-0-0
  2. NEBIVOLOL. [Concomitant]
     Active Substance: NEBIVOLOL
     Indication: DRUG THERAPY
     Dosage: 1-0-0
  3. CATAPRESAN [Suspect]
     Active Substance: CLONIDINE
     Indication: DRUG THERAPY
     Dosage: 1-0-1
  4. SPIRONOLACTONE. [Concomitant]
     Active Substance: SPIRONOLACTONE
     Indication: DRUG THERAPY
     Dosage: 1-0-0

REACTIONS (2)
  - Left ventricular hypertrophy [Unknown]
  - Hypertension [Unknown]
